FAERS Safety Report 12798588 (Version 1)
Quarter: 2016Q3

REPORT INFORMATION
  Report Type: Spontaneous
  Country: US (occurrence: US)
  Receive Date: 20160930
  Receipt Date: 20160930
  Transmission Date: 20161109
  Serious: Yes (Other)
  Sender: FDA-Public Use
  Company Number: US-PAR PHARMACEUTICAL COMPANIES-2016SCPR015876

PATIENT

DRUGS (10)
  1. FENTANYL. [Concomitant]
     Active Substance: FENTANYL
     Indication: ANALGESIC THERAPY
     Dosage: 100 MCG, SINGLE
  2. GABAPENTIN. [Concomitant]
     Active Substance: GABAPENTIN
     Indication: ACUTE KIDNEY INJURY
     Dosage: 400 MG / DAY
     Route: 065
  3. GABAPENTIN. [Concomitant]
     Active Substance: GABAPENTIN
     Indication: PAIN IN EXTREMITY
  4. CONTROLLED ANALGESIA [Concomitant]
     Dosage: UNK UNK, UNKNOWN
  5. HYDROMORPHONE [Concomitant]
     Active Substance: HYDROMORPHONE
     Indication: PAIN IN EXTREMITY
     Dosage: UNK, UNKNOWN
     Route: 065
  6. KETALAR [Suspect]
     Active Substance: KETAMINE HYDROCHLORIDE
     Indication: ANALGESIC THERAPY
     Dosage: 0.2 MG/KG/HOUR
  7. ACETAMINOPHEN. [Concomitant]
     Active Substance: ACETAMINOPHEN
     Indication: PAIN IN EXTREMITY
     Dosage: 3000 MG / DAY
  8. AMPICILLIN W/SULBACTAM             /00892601/ [Concomitant]
     Active Substance: AMPICILLIN SODIUM\SULBACTAM SODIUM
     Indication: PRODUCT USED FOR UNKNOWN INDICATION
     Dosage: UNK UNK, UNKNOWN
  9. CONTROLLED ANALGESIA [Concomitant]
     Indication: ANALGESIC THERAPY
     Dosage: 0.4 MG, EVERY 10 MINUTES
  10. CONTROLLED ANALGESIA [Concomitant]
     Dosage: 6 MG, IN 4 HOURS

REACTIONS (2)
  - Product use issue [Unknown]
  - Mania [Recovered/Resolved]
